FAERS Safety Report 9060106 (Version 1)
Quarter: 2013Q1

REPORT INFORMATION
  Report Type: Spontaneous
  Country: US (occurrence: US)
  Receive Date: 20130212
  Receipt Date: 20130212
  Transmission Date: 20140127
  Serious: Yes (Hospitalization)
  Sender: FDA-Public Use
  Company Number: US-BAYER-2013-017144

PATIENT
  Age: 46 Year
  Sex: Female

DRUGS (6)
  1. YAZ [Suspect]
  2. ADVIL [IBUPROFEN] [Concomitant]
  3. TYLENOL EXTRA STRENGTH [Concomitant]
  4. DARVOCET [Concomitant]
  5. ALESSE [Concomitant]
  6. NICOTINE PATCH [Concomitant]

REACTIONS (3)
  - Pulmonary embolism [None]
  - Deep vein thrombosis [None]
  - Contraindication to medical treatment [None]
